FAERS Safety Report 17509614 (Version 1)
Quarter: 2020Q1

REPORT INFORMATION
  Report Type: Spontaneous
  Country: GB (occurrence: GB)
  Receive Date: 20200306
  Receipt Date: 20200306
  Transmission Date: 20200409
  Serious: Yes (Life-Threatening, Hospitalization, Disabling, Other)
  Sender: FDA-Public Use
  Company Number: GB-ELI_LILLY_AND_COMPANY-GB202003001146

PATIENT
  Age: 38 Year
  Sex: Male
  Weight: 92.2 kg

DRUGS (1)
  1. TALTZ [Suspect]
     Active Substance: IXEKIZUMAB
     Indication: PSORIASIS
     Dosage: 160 MG, UNKNOWN
     Route: 058
     Dates: start: 20191209, end: 20191209

REACTIONS (27)
  - Tinnitus [Not Recovered/Not Resolved]
  - Petechiae [Not Recovered/Not Resolved]
  - Face oedema [Recovering/Resolving]
  - Muscular weakness [Unknown]
  - Headache [Unknown]
  - Insomnia [Not Recovered/Not Resolved]
  - Injection site bruising [Unknown]
  - Oedema peripheral [Recovering/Resolving]
  - Chills [Not Recovered/Not Resolved]
  - Injection site swelling [Unknown]
  - Tachycardia [Unknown]
  - Hyperhidrosis [Not Recovered/Not Resolved]
  - Pain in jaw [Unknown]
  - Semen viscosity decreased [Unknown]
  - Hypersensitivity [Not Recovered/Not Resolved]
  - Pyrexia [Unknown]
  - Xanthopsia [Not Recovered/Not Resolved]
  - Myalgia [Unknown]
  - Malaise [Unknown]
  - Rash [Not Recovered/Not Resolved]
  - Dyspnoea [Unknown]
  - Eye oedema [Recovering/Resolving]
  - Conjunctival haemorrhage [Not Recovered/Not Resolved]
  - Arthralgia [Unknown]
  - Gait disturbance [Not Recovered/Not Resolved]
  - Hypotension [Unknown]
  - Injection site pain [Unknown]

NARRATIVE: CASE EVENT DATE: 20191215
